FAERS Safety Report 23904705 (Version 2)
Quarter: 2024Q2

REPORT INFORMATION
  Report Type: Spontaneous
  Country: TN (occurrence: TN)
  Receive Date: 20240527
  Receipt Date: 20240531
  Transmission Date: 20240717
  Serious: Yes (Other)
  Sender: FDA-Public Use
  Company Number: TN-PFIZER INC-PV202400067814

PATIENT
  Age: 57 Year
  Sex: Female

DRUGS (6)
  1. FLUCONAZOLE [Interacting]
     Active Substance: FLUCONAZOLE
     Indication: Oesophageal candidiasis
     Dosage: 400 MG, 1X/DAY
     Route: 048
  2. FLUOXETINE [Interacting]
     Active Substance: FLUOXETINE HYDROCHLORIDE
     Indication: Depression
     Dosage: 20 MG FOR 10 YEARS
  3. CEFOTAXIME [Interacting]
     Active Substance: CEFOTAXIME SODIUM
     Indication: Ileocaecal resection
     Dosage: 2000 MG, 3X/DAY
     Route: 042
  4. CEFOTAXIME [Interacting]
     Active Substance: CEFOTAXIME SODIUM
     Indication: Post procedural persistent drain fluid
  5. CIPROFLOXACIN [Interacting]
     Active Substance: CIPROFLOXACIN
     Indication: Ileocaecal resection
     Dosage: 500 MG, 3X/DAY
     Route: 042
  6. CIPROFLOXACIN [Interacting]
     Active Substance: CIPROFLOXACIN
     Indication: Post procedural persistent drain fluid

REACTIONS (3)
  - Drug interaction [Recovered/Resolved]
  - Antidepressant drug level increased [Recovered/Resolved]
  - Generalised tonic-clonic seizure [Recovered/Resolved]
